FAERS Safety Report 7428429-8 (Version None)
Quarter: 2011Q2

REPORT INFORMATION
  Report Type: 
  Country: None (occurrence: None)
  Receive Date: 20110421
  Receipt Date: 20110411
  Transmission Date: 20111010
  Serious: Yes (Hospitalization)
  Sender: FDA-Public Use
  Company Number: PHHY2011CA30517

PATIENT
  Sex: Female

DRUGS (1)
  1. ACLASTA [Suspect]
     Indication: OSTEOPOROSIS
     Dosage: UNK
     Route: 042
     Dates: start: 20100419

REACTIONS (5)
  - BLOOD CHLORIDE DECREASED [None]
  - WHITE BLOOD CELL COUNT DECREASED [None]
  - BLOOD SODIUM DECREASED [None]
  - RED CELL DISTRIBUTION WIDTH INCREASED [None]
  - JOINT INJURY [None]
